FAERS Safety Report 9199452 (Version 1)
Quarter: 2013Q1

REPORT INFORMATION
  Report Type: Spontaneous
  Country: US (occurrence: US)
  Receive Date: 20130329
  Receipt Date: 20130329
  Transmission Date: 20140127
  Serious: No
  Sender: FDA-Public Use
  Company Number: US-009507513-1303USA013590

PATIENT
  Sex: Female

DRUGS (6)
  1. VICTRELIS [Suspect]
     Indication: HEPATITIS C
     Dosage: 800 MG, Q8H
     Route: 048
     Dates: start: 2013
  2. PEGASYS [Suspect]
  3. RIBAPAK [Suspect]
  4. DIOVAN [Concomitant]
  5. ADVIL [Concomitant]
  6. LUNESTA [Concomitant]

REACTIONS (2)
  - Back pain [Unknown]
  - Arthralgia [Unknown]
